FAERS Safety Report 19425706 (Version 1)
Quarter: 2021Q2

REPORT INFORMATION
  Report Type: Spontaneous
  Country: US (occurrence: US)
  Receive Date: 20210616
  Receipt Date: 20210616
  Transmission Date: 20210717
  Serious: Yes (Other)
  Sender: FDA-Public Use
  Company Number: US-PFIZER INC-2021646458

PATIENT
  Age: 54 Year
  Sex: Female
  Weight: 49.9 kg

DRUGS (7)
  1. LAMICTAL [Interacting]
     Active Substance: LAMOTRIGINE
     Indication: SEIZURE
     Dosage: 600 MG A DAY, 6 PILLS A DAY
  2. NEURONTIN [Interacting]
     Active Substance: GABAPENTIN
     Indication: SEIZURE
     Dosage: 600 MG A DAY PER DAY
  3. TOZINAMERAN. [Suspect]
     Active Substance: TOZINAMERAN
     Indication: COVID-19 IMMUNISATION
     Dosage: 1ST DOSE, SINGLE
     Dates: start: 20210601, end: 20210601
  4. CLONAZEPAM. [Interacting]
     Active Substance: CLONAZEPAM
     Indication: SEIZURE
     Dosage: 2.5 MG A DAY, TAKES IT 5 TIMES A DAY, THEY BREAK IT UP
     Route: 048
  5. CLONAZEPAM. [Interacting]
     Active Substance: CLONAZEPAM
     Indication: ANXIETY
  6. SYNTHROID [Concomitant]
     Active Substance: LEVOTHYROXINE SODIUM
     Indication: THYROID DISORDER
     Dosage: 112 MG, 1X/DAY
     Route: 048
  7. ZYRTEC [Concomitant]
     Active Substance: CETIRIZINE HYDROCHLORIDE
     Indication: HYPERSENSITIVITY
     Dosage: UNKNOWN, 1X/DAY (AT NIGHT)
     Route: 048

REACTIONS (16)
  - Drug ineffective [Recovered/Resolved]
  - Dysphonia [Recovering/Resolving]
  - Seizure [Recovered/Resolved]
  - Headache [Recovered/Resolved]
  - Panic attack [Recovering/Resolving]
  - Drug interaction [Recovered/Resolved]
  - Thinking abnormal [Unknown]
  - Allergy to vaccine [Unknown]
  - Rhinorrhoea [Unknown]
  - Cerebral disorder [Unknown]
  - Blood glucose decreased [Unknown]
  - Pharyngeal swelling [Not Recovered/Not Resolved]
  - Cough [Unknown]
  - Hypertension [Unknown]
  - Eye swelling [Not Recovered/Not Resolved]
  - Myalgia [Unknown]

NARRATIVE: CASE EVENT DATE: 202106
